FAERS Safety Report 9773249 (Version 1)
Quarter: 2013Q4

REPORT INFORMATION
  Report Type: Spontaneous
  Country: TR (occurrence: TR)
  Receive Date: 20131219
  Receipt Date: 20131219
  Transmission Date: 20140711
  Serious: Yes (Other)
  Sender: FDA-Public Use
  Company Number: TR-GLAXOSMITHKLINE-B0892706A

PATIENT
  Age: 34 Year
  Sex: Female
  Weight: 70 kg

DRUGS (1)
  1. ZOFRAN [Suspect]
     Indication: NAUSEA
     Dosage: 4MG PER DAY
     Route: 048
     Dates: start: 20130423, end: 20130523

REACTIONS (3)
  - Abortion spontaneous [Unknown]
  - Off label use [Not Recovered/Not Resolved]
  - Exposure during pregnancy [Unknown]
